FAERS Safety Report 10098694 (Version 1)
Quarter: 2014Q2

REPORT INFORMATION
  Report Type: Spontaneous
  Country: FR (occurrence: FR)
  Receive Date: 20140423
  Receipt Date: 20140423
  Transmission Date: 20141212
  Serious: Yes (Hospitalization)
  Sender: FDA-Public Use
  Company Number: FR-JNJFOC-20140413069

PATIENT
  Age: 66 Year
  Sex: Female
  Weight: 60 kg

DRUGS (8)
  1. XARELTO [Suspect]
     Indication: THROMBOSIS PROPHYLAXIS
     Route: 048
     Dates: start: 20140123, end: 20140125
  2. LOVENOX [Suspect]
     Indication: THROMBOSIS PROPHYLAXIS
     Route: 042
     Dates: start: 20140120, end: 20140122
  3. CONTRAMAL [Concomitant]
     Route: 065
     Dates: start: 20140120
  4. FOLIC ACID [Concomitant]
     Route: 065
  5. LEVOTHYROX [Concomitant]
     Route: 065
  6. IMOVANE [Concomitant]
     Route: 065
     Dates: start: 20140122
  7. DAFALGAN [Concomitant]
     Route: 065
     Dates: start: 20140120
  8. FUMAFER [Concomitant]
     Route: 065
     Dates: start: 20140122

REACTIONS (1)
  - Deep vein thrombosis [Unknown]
